FAERS Safety Report 17773564 (Version 3)
Quarter: 2020Q2

REPORT INFORMATION
  Report Type: Report from Study
  Country: None (occurrence: GB)
  Receive Date: 20200512
  Receipt Date: 20200613
  Transmission Date: 20200714
  Serious: Yes (Other)
  Sender: FDA-Public Use
  Company Number: GB-ABBVIE-20K-167-3399752-00

PATIENT
  Age: 59 Year
  Sex: Male

DRUGS (2)
  1. DUODOPA [Suspect]
     Active Substance: CARBIDOPA\LEVODOPA
     Route: 050
  2. DUODOPA [Suspect]
     Active Substance: CARBIDOPA\LEVODOPA
     Indication: PARKINSON^S DISEASE
     Dosage: 1 CASSETTE DAILY
     Route: 050

REACTIONS (8)
  - Disability [Not Recovered/Not Resolved]
  - Speech disorder [Recovered/Resolved]
  - Condition aggravated [Unknown]
  - Anger [Unknown]
  - Decubitus ulcer [Unknown]
  - Gait inability [Not Recovered/Not Resolved]
  - Device issue [Unknown]
  - Skin disorder [Unknown]

NARRATIVE: CASE EVENT DATE: 20200503
